FAERS Safety Report 23953361 (Version 2)
Quarter: 2024Q3

REPORT INFORMATION
  Report Type: Report from Study
  Country: US (occurrence: US)
  Receive Date: 20240608
  Receipt Date: 20240717
  Transmission Date: 20241016
  Serious: Yes (Hospitalization, Other)
  Sender: JAZZ
  Company Number: US-JAZZ PHARMACEUTICALS-2024-US-004342

PATIENT
  Sex: Female

DRUGS (10)
  1. EPIDIOLEX [Suspect]
     Active Substance: CANNABIDIOL
     Indication: Lennox-Gastaut syndrome
     Dosage: 8.5 MILLILITER, BID
     Route: 048
  2. EPIDIOLEX [Suspect]
     Active Substance: CANNABIDIOL
     Dosage: UNK
  3. EPIDIOLEX [Suspect]
     Active Substance: CANNABIDIOL
     Dosage: UNK
  4. EPIDIOLEX [Suspect]
     Active Substance: CANNABIDIOL
     Dosage: 8.5 MILLILITER, BID
     Route: 048
  5. EPIDIOLEX [Suspect]
     Active Substance: CANNABIDIOL
     Dosage: 8.5 MILLILITER, BID
     Route: 048
  6. TYLENOL [Concomitant]
     Active Substance: ACETAMINOPHEN
     Indication: Product used for unknown indication
  7. TOPAMAX [Concomitant]
     Active Substance: TOPIRAMATE
     Indication: Product used for unknown indication
  8. KEPPRA [Concomitant]
     Active Substance: LEVETIRACETAM
     Indication: Product used for unknown indication
  9. OXCARBAZEPINE [Concomitant]
     Active Substance: OXCARBAZEPINE
     Indication: Product used for unknown indication
  10. CLONAZEPAM [Concomitant]
     Active Substance: CLONAZEPAM
     Indication: Product used for unknown indication

REACTIONS (5)
  - Seizure [Unknown]
  - Seizure [Unknown]
  - Status epilepticus [Unknown]
  - Product dose omission issue [Unknown]
  - Product administration interrupted [Unknown]
